FAERS Safety Report 18024885 (Version 7)
Quarter: 2021Q3

REPORT INFORMATION
  Report Type: Report from Study
  Country: US (occurrence: US)
  Receive Date: 20200715
  Receipt Date: 20210920
  Transmission Date: 20211014
  Serious: No
  Sender: FDA-Public Use
  Company Number: NVSC2020US193845

PATIENT
  Age: 59 Year
  Sex: Female

DRUGS (3)
  1. GILENYA [Suspect]
     Active Substance: FINGOLIMOD HYDROCHLORIDE
     Indication: RELAPSING MULTIPLE SCLEROSIS
     Dosage: 0.5 MG, QD
     Route: 048
  2. GILENYA [Suspect]
     Active Substance: FINGOLIMOD HYDROCHLORIDE
     Dosage: 0.5 MG
     Route: 048
     Dates: start: 20160101
  3. GILENYA [Suspect]
     Active Substance: FINGOLIMOD HYDROCHLORIDE
     Route: 048

REACTIONS (7)
  - Lymphocyte count abnormal [Not Recovered/Not Resolved]
  - Fall [Unknown]
  - Memory impairment [Unknown]
  - Gait disturbance [Unknown]
  - Contusion [Unknown]
  - Product dose omission issue [Unknown]
  - Mitral valve prolapse [Unknown]

NARRATIVE: CASE EVENT DATE: 20200706
